FAERS Safety Report 10825833 (Version 6)
Quarter: 2015Q2

REPORT INFORMATION
  Report Type: Spontaneous
  Country: CA (occurrence: CA)
  Receive Date: 20150219
  Receipt Date: 20150626
  Transmission Date: 20150821
  Serious: Yes (Other)
  Sender: FDA-Public Use
  Company Number: CA-ROCHE-1540352

PATIENT
  Age: 40 Year
  Sex: Male

DRUGS (6)
  1. XOLAIR [Suspect]
     Active Substance: OMALIZUMAB
     Indication: ASTHMA
     Route: 058
     Dates: start: 20141230
  2. XOLAIR [Suspect]
     Active Substance: OMALIZUMAB
     Route: 058
     Dates: start: 20150407, end: 201505
  3. XOLAIR [Suspect]
     Active Substance: OMALIZUMAB
     Route: 058
     Dates: start: 20150616
  4. XOLAIR [Suspect]
     Active Substance: OMALIZUMAB
     Route: 058
     Dates: start: 20150310
  5. VENTOLINE [Concomitant]
     Active Substance: ALBUTEROL
     Dosage: 1-2 TIMES A PER DAY
     Route: 065
  6. XOLAIR [Suspect]
     Active Substance: OMALIZUMAB
     Route: 058
     Dates: start: 20150324

REACTIONS (5)
  - Wheezing [Unknown]
  - Respiratory disorder [Unknown]
  - Body temperature decreased [Unknown]
  - Hand fracture [Unknown]
  - Accident at work [Unknown]

NARRATIVE: CASE EVENT DATE: 201501
